FAERS Safety Report 9749239 (Version 1)
Quarter: 2013Q4

REPORT INFORMATION
  Report Type: Spontaneous
  Country: US (occurrence: US)
  Receive Date: 20131212
  Receipt Date: 20131212
  Transmission Date: 20140711
  Serious: No
  Sender: FDA-Public Use
  Company Number: US-INCYTE CORPORATION-2013IN002667

PATIENT
  Sex: 0

DRUGS (6)
  1. JAKAFI [Suspect]
     Indication: MYELOFIBROSIS
     Dosage: NOT SPECIFIED
     Route: 048
     Dates: start: 20130926, end: 2013
  2. JAKAFI [Suspect]
     Dosage: 20 MG, BID
     Dates: start: 2013
  3. METOPROLOL [Concomitant]
  4. ASPIRIN [Concomitant]
     Dosage: 81 MG, UNK
  5. ALLOPURINOL [Concomitant]
  6. OMEPRAZOLE [Concomitant]

REACTIONS (2)
  - Fungal infection [Unknown]
  - Urinary tract infection fungal [Unknown]
